FAERS Safety Report 4310793-X (Version None)
Quarter: 2004Q1

REPORT INFORMATION
  Report Type: 
  Country: None (occurrence: None)
  Receive Date: 20040302
  Receipt Date: 20040217
  Transmission Date: 20041129
  Serious: Yes (Death, Hospitalization)
  Sender: FDA-Public Use
  Company Number: CERZ-10330

PATIENT
  Age: 6 Year
  Sex: Female
  Weight: 17.9 kg

DRUGS (20)
  1. CEREZYME [Suspect]
     Indication: GAUCHER'S DISEASE
     Dosage: 1000 UNITS Q2WKS IV
     Route: 042
     Dates: start: 20030530, end: 20030820
  2. CEREZYME [Suspect]
     Indication: GAUCHER'S DISEASE
     Dosage: 1400 UNITS Q2WKS IV
     Route: 042
     Dates: end: 20030520
  3. CEREZYME [Suspect]
     Indication: GAUCHER'S DISEASE
     Dosage: 1200 UNITS Q2WKS IV
     Route: 042
     Dates: start: 20021130
  4. CEREZYME [Suspect]
     Indication: GAUCHER'S DISEASE
     Dosage: 1000 UNITS Q2WKS IV
     Route: 042
     Dates: start: 20011110, end: 20021120
  5. CEREZYME [Suspect]
     Indication: GAUCHER'S DISEASE
     Dosage: 800 UNITS Q2WKS IV
     Route: 042
     Dates: start: 19980422, end: 20011030
  6. CEREZYME [Suspect]
     Indication: GAUCHER'S DISEASE
     Dosage: 400 UNITS Q2WKS IV
     Route: 042
     Dates: start: 19980320, end: 19980403
  7. PHENOBARBITAL SODIUM [Concomitant]
  8. ... [Concomitant]
  9. CLOBAZAM [Concomitant]
  10. FUROSEMIDE [Concomitant]
  11. SPIRONOLACTONE [Concomitant]
  12. RAVONA [Concomitant]
  13. TRICLOFOS SODIUM [Concomitant]
  14. ERYTHROMYCIN [Concomitant]
  15. NEOPHYLLIN [Concomitant]
  16. TULOBUTEROL [Concomitant]
  17. ALFACALCIDOL [Concomitant]
  18. POTASSIUM GLUCONATE [Concomitant]
  19. CEFPIROME [Concomitant]
  20. SULBACTAM / CEFOPERAZONE [Concomitant]

REACTIONS (10)
  - CARDIO-RESPIRATORY ARREST [None]
  - CHOLECYSTITIS [None]
  - CHOLELITHIASIS [None]
  - COAGULOPATHY [None]
  - HAEMODIALYSIS [None]
  - HAEMOGLOBIN DECREASED [None]
  - HEPATIC FAILURE [None]
  - MULTI-ORGAN FAILURE [None]
  - PLATELET COUNT DECREASED [None]
  - POSTOPERATIVE INFECTION [None]
